FAERS Safety Report 9399779 (Version 1)
Quarter: 2013Q3

REPORT INFORMATION
  Report Type: Spontaneous
  Country: DE (occurrence: AU)
  Receive Date: 20130710
  Receipt Date: 20130710
  Transmission Date: 20140515
  Serious: Yes (Hospitalization)
  Sender: FDA-Public Use
  Company Number: 1307-875

PATIENT
  Age: 86 Year
  Sex: Male

DRUGS (1)
  1. EYLEA [Suspect]
     Indication: AGE-RELATED MACULAR DEGENERATION
     Dosage: 5 INJECTIONS AT TIME OF REPORT.
     Dates: start: 2013

REACTIONS (6)
  - Eye pain [None]
  - Eye discharge [None]
  - Ocular hyperaemia [None]
  - Visual acuity reduced [None]
  - Lung infection [None]
  - Lower respiratory tract infection [None]
